FAERS Safety Report 6869449-1 (Version None)
Quarter: 2010Q3

REPORT INFORMATION
  Report Type: 
  Country: None (occurrence: None)
  Receive Date: 20100722
  Receipt Date: 20080819
  Transmission Date: 20110219
  Serious: Yes (Other)
  Sender: FDA-Public Use
  Company Number: US-PFIZER INC-2008062688

PATIENT
  Sex: Female
  Weight: 78.9 kg

DRUGS (2)
  1. CHANTIX [Suspect]
     Indication: SMOKING CESSATION THERAPY
     Route: 048
     Dates: start: 20071020
  2. MULTI-VITAMINS [Concomitant]

REACTIONS (10)
  - ABDOMINAL DISCOMFORT [None]
  - ABNORMAL DREAMS [None]
  - AGGRESSION [None]
  - ANGER [None]
  - DEPRESSION [None]
  - DRUG DOSE OMISSION [None]
  - PALPITATIONS [None]
  - SLEEP DISORDER [None]
  - SUICIDAL IDEATION [None]
  - WRONG TECHNIQUE IN DRUG USAGE PROCESS [None]
